FAERS Safety Report 6818376-4 (Version None)
Quarter: 2010Q3

REPORT INFORMATION
  Report Type: 
  Country: None (occurrence: None)
  Receive Date: 20100706
  Receipt Date: 20080418
  Transmission Date: 20110219
  Serious: No
  Sender: FDA-Public Use
  Company Number: US-PFIZER INC-2008016388

PATIENT
  Sex: Male
  Weight: 74.84 kg

DRUGS (1)
  1. ZITHROMAX [Suspect]
     Dates: start: 20080207, end: 20080211

REACTIONS (4)
  - DYSGEUSIA [None]
  - EATING DISORDER [None]
  - NAUSEA [None]
  - WEIGHT DECREASED [None]
